FAERS Safety Report 7767867 (Version 3)
Quarter: 2012Q4

REPORT INFORMATION
  Report Type: 
  Country: US (occurrence: US)
  Receive Date: 20110120
  Receipt Date: 20121002
  Transmission Date: 20130627
  Serious: No
  Sender: FDA-Public Use
  Company Number: US-B.I. PHARMACEUTICALS,INC./RIDGEFIELD-2011-BP-01119BP

PATIENT
  Age: 74 None
  Sex: Female

DRUGS (21)
  1. PRADAXA [Suspect]
     Indication: ATRIAL FIBRILLATION
     Dosage: 300 mg
     Route: 048
     Dates: start: 2009
  2. TENORMIN [Concomitant]
     Indication: HYPERTENSION
     Dosage: 25 mg
     Route: 048
     Dates: start: 1998
  3. HCTZ [Concomitant]
     Indication: HYPERTENSION
     Dosage: 25 mg
     Route: 048
  4. HCTZ [Concomitant]
     Indication: SWELLING
  5. FISH OIL [Concomitant]
     Indication: PROPHYLAXIS
  6. MULTI VITAMIN [Concomitant]
     Indication: PROPHYLAXIS
     Route: 048
  7. GARLIC [Concomitant]
     Indication: PROPHYLAXIS
     Route: 048
  8. GARLIC [Concomitant]
     Indication: ROUTINE HEALTH MAINTENANCE
  9. FLAX SEED [Concomitant]
     Indication: PROPHYLAXIS
  10. PREMERE OCULAR NUTRITION [Concomitant]
     Indication: MACULAR DEGENERATION
     Route: 048
     Dates: start: 2009
  11. SYNTHROID [Concomitant]
     Indication: THYROID DISORDER
     Dosage: 0.25 mcg
     Route: 048
     Dates: start: 2008
  12. ATENOLOL [Concomitant]
     Indication: HYPERTENSION
     Dosage: 100 mg
     Route: 048
  13. DIOVAN [Concomitant]
     Indication: HYPERTENSION
     Dosage: 320 mg
     Route: 048
     Dates: start: 201208
  14. DIOVAN [Concomitant]
     Indication: HEART VALVE STENOSIS
     Dosage: 160 mg
     Route: 048
     Dates: end: 201208
  15. BABY ASPIRIN [Concomitant]
     Indication: BLOOD DISORDER
     Dosage: 81 mg
     Route: 048
  16. SUPER DHA GEMS [Concomitant]
     Indication: CARDIAC DISORDER
     Route: 048
  17. SUPER DHA GEMS [Concomitant]
     Indication: ANGIOPATHY
  18. HYALURONIC ACID [Concomitant]
     Indication: ARTHROPATHY
     Route: 048
     Dates: start: 20120910
  19. VITAMIN B12 [Concomitant]
     Route: 048
     Dates: start: 2012, end: 2012
  20. CRANBERRY [Concomitant]
     Indication: BLADDER DISORDER
     Dosage: 500 mg
     Route: 048
  21. LIPOFLAVONOIDS [Concomitant]
     Indication: TINNITUS
     Route: 048
     Dates: end: 2012

REACTIONS (21)
  - Dizziness [Recovered/Resolved]
  - Dyspepsia [Not Recovered/Not Resolved]
  - Faecal volume increased [Not Recovered/Not Resolved]
  - Headache [Recovered/Resolved]
  - Aspartate aminotransferase increased [Not Recovered/Not Resolved]
  - Haematuria [Recovered/Resolved]
  - Pain in extremity [Not Recovered/Not Resolved]
  - Dyspnoea [Not Recovered/Not Resolved]
  - Hypertension [Recovered/Resolved]
  - Fall [Recovered/Resolved]
  - Nausea [Recovered/Resolved]
  - Periorbital contusion [Recovered/Resolved]
  - Lip injury [Recovered/Resolved]
  - Face injury [Recovered/Resolved]
  - Fall [Recovered/Resolved]
  - Laceration [Recovered/Resolved]
  - Psychomotor hyperactivity [Recovered/Resolved]
  - Scratch [Recovered/Resolved]
  - Syncope [Recovered/Resolved]
  - Aortic stenosis [Not Recovered/Not Resolved]
  - Insomnia [Recovered/Resolved]
